FAERS Safety Report 8049557-2 (Version None)
Quarter: 2012Q1

REPORT INFORMATION
  Report Type: 
  Country: None (occurrence: None)
  Receive Date: 20120111
  Receipt Date: 20110420
  Transmission Date: 20120608
  Serious: No
  Sender: FDA-Public Use
  Company Number: AEUSA201100107

PATIENT

DRUGS (1)
  1. HYPERTET [Suspect]
     Indication: PRODUCT USED FOR UNKNOWN INDICATION
     Dosage: 1X;IM
     Route: 030
     Dates: start: 20110410, end: 20110410

REACTIONS (4)
  - DRUG ADMINISTRATION ERROR [None]
  - NEEDLE ISSUE [None]
  - PRODUCT QUALITY ISSUE [None]
  - SYRINGE ISSUE [None]
